FAERS Safety Report 7565930-0 (Version None)
Quarter: 2011Q2

REPORT INFORMATION
  Report Type: 
  Country: None (occurrence: None)
  Receive Date: 20110623
  Receipt Date: 20110609
  Transmission Date: 20111010
  Serious: Yes (Death, Hospitalization, Other)
  Sender: FDA-Public Use
  Company Number: GB-CELGENEUS-167-21880-11061377

PATIENT

DRUGS (1)
  1. REVLIMID [Suspect]
     Route: 048

REACTIONS (10)
  - NEUROPATHY PERIPHERAL [None]
  - MULTIPLE MYELOMA [None]
  - RENAL FAILURE ACUTE [None]
  - INFECTION [None]
  - EMBOLISM VENOUS [None]
  - ANAEMIA [None]
  - NEUTROPENIC SEPSIS [None]
  - THROMBOCYTOPENIA [None]
  - NEUTROPENIA [None]
  - RENAL IMPAIRMENT [None]
